FAERS Safety Report 17003156 (Version 1)
Quarter: 2019Q4

REPORT INFORMATION
  Report Type: Spontaneous
  Country: FR (occurrence: FR)
  Receive Date: 20191107
  Receipt Date: 20191107
  Transmission Date: 20200122
  Serious: Yes (Hospitalization)
  Sender: FDA-Public Use
  Company Number: FR-TEVA-2019-FR-1132482

PATIENT
  Age: 86 Year
  Sex: Female

DRUGS (10)
  1. CIPROFIBRATE [Interacting]
     Active Substance: CIPROFIBRATE
     Indication: HYPERTRIGLYCERIDAEMIA
     Dosage: UNKNOWN DOSAGE
     Route: 048
  2. ADENURIC [Concomitant]
     Active Substance: FEBUXOSTAT
  3. DAFALGAN [Interacting]
     Active Substance: ACETAMINOPHEN
     Indication: PAIN
     Dosage: UNKNOWN DOSAGE
     Route: 048
  4. CANDESARTAN CILEXETIL. [Concomitant]
     Active Substance: CANDESARTAN CILEXETIL
  5. SPASFON [Concomitant]
  6. IMPORTAL [Concomitant]
     Active Substance: LACTITOL
  7. AMIODARONE (CHLORHYDRATE D^) [Suspect]
     Active Substance: AMIODARONE HYDROCHLORIDE
     Indication: ATRIAL FIBRILLATION
     Dosage: UNKNOWN DOSAGE
     Route: 048
  8. UVEDOSE [Concomitant]
     Active Substance: CHOLECALCIFEROL
  9. PREVISCAN 20 MG, COMPRIM? S?CABLE [Interacting]
     Active Substance: FLUINDIONE
     Indication: ATRIAL FIBRILLATION
     Dosage: 15 MG, 1DAY
     Route: 048
  10. ARNIGEL [Concomitant]

REACTIONS (4)
  - Anaemia [Not Recovered/Not Resolved]
  - Anaemia [Not Recovered/Not Resolved]
  - Drug interaction [Unknown]
  - Haematoma muscle [Recovering/Resolving]

NARRATIVE: CASE EVENT DATE: 2019
